FAERS Safety Report 9423180 (Version 1)
Quarter: 2013Q3

REPORT INFORMATION
  Report Type: Spontaneous
  Country: IT (occurrence: IT)
  Receive Date: 20130726
  Receipt Date: 20130726
  Transmission Date: 20140515
  Serious: Yes (Hospitalization)
  Sender: FDA-Public Use
  Company Number: PHHY2013IT079519

PATIENT
  Sex: 0

DRUGS (3)
  1. TEGRETOL [Suspect]
     Indication: TRIGEMINAL NEURALGIA
     Dosage: 300 MG, DAILY (100 MG IN THE MORNING AS NEEDED AND 200 MG IN THE EVENING)
  2. TEGRETOL [Suspect]
     Dosage: 800 MG, DAILY
     Dates: start: 20130709, end: 20130711
  3. TEGRETOL [Suspect]
     Dosage: UNK UKN, UNK

REACTIONS (2)
  - Sopor [Recovered/Resolved]
  - Prescribed overdose [Recovered/Resolved]
